FAERS Safety Report 8574133-2 (Version None)
Quarter: 2012Q3

REPORT INFORMATION
  Report Type: 
  Country: None (occurrence: None)
  Receive Date: 20120806
  Receipt Date: 20120802
  Transmission Date: 20120928
  Serious: Yes (Hospitalization)
  Sender: FDA-Public Use
  Company Number: PHHY2012GB061970

PATIENT
  Age: 69 Year
  Sex: Female
  Weight: 64 kg

DRUGS (12)
  1. TETRABENAZINE [Concomitant]
     Dates: start: 20111128, end: 20120320
  2. METOCLOPRAMIDE [Concomitant]
     Dates: start: 20080806, end: 20110901
  3. ACRIVASTINE [Concomitant]
     Dates: start: 19950728
  4. ATORVASTATIN [Concomitant]
     Dates: start: 20031114
  5. RAMIPRIL [Concomitant]
     Dates: start: 20080201
  6. MIRTAZAPINE [Concomitant]
     Dates: start: 20120501
  7. PROPRANOLOL [Concomitant]
     Dosage: 10 MG
     Dates: start: 20120501
  8. BECONASE [Concomitant]
     Dates: start: 20071120
  9. FENOFIBRATE [Concomitant]
     Dates: start: 20030520
  10. BENDROFLUMETHIAZIDE [Concomitant]
     Dates: start: 20050420
  11. LANSOPRAZOLE [Concomitant]
     Dates: start: 20080627
  12. LORAZEPAM [Suspect]
     Dosage: 1 MG, TID
     Dates: start: 20120329, end: 20120523

REACTIONS (3)
  - MUSCLE CONTRACTIONS INVOLUNTARY [None]
  - EATING DISORDER [None]
  - FALL [None]
